FAERS Safety Report 9442328 (Version 1)
Quarter: 2013Q3

REPORT INFORMATION
  Report Type: Spontaneous
  Country: US (occurrence: US)
  Receive Date: 20130806
  Receipt Date: 20130806
  Transmission Date: 20140515
  Serious: No
  Sender: FDA-Public Use
  Company Number: US-GLAXOSMITHKLINE-A1005093A

PATIENT
  Age: 77 Year
  Sex: Male

DRUGS (7)
  1. ADVAIR [Suspect]
     Indication: BRONCHITIS CHRONIC
     Dosage: 1PUFF PER DAY
     Route: 055
     Dates: start: 2007
  2. SINGULAIR [Concomitant]
  3. VITAMINS [Concomitant]
  4. LISINOPRIL [Concomitant]
  5. PRO-AIR [Concomitant]
  6. VITAMIN D [Concomitant]
  7. CINNAMON [Concomitant]

REACTIONS (5)
  - Drug ineffective [Unknown]
  - Dyspnoea [Unknown]
  - Malaise [Unknown]
  - Dysgeusia [Unknown]
  - Product quality issue [Unknown]
